FAERS Safety Report 21844684 (Version 1)
Quarter: 2023Q1

REPORT INFORMATION
  Report Type: Spontaneous
  Country: US (occurrence: None)
  Receive Date: 20230110
  Receipt Date: 20230110
  Transmission Date: 20230418
  Serious: Yes (Hospitalization)
  Sender: FDA-Public Use
  Company Number: None

PATIENT
  Age: 30 Year
  Sex: Female

DRUGS (1)
  1. MOUNJARO [Suspect]
     Active Substance: TIRZEPATIDE
     Indication: Glucose tolerance impaired
     Dates: start: 20220811, end: 20221213

REACTIONS (4)
  - Constipation [None]
  - Intestinal obstruction [None]
  - Intestinal ulcer [None]
  - Flatulence [None]

NARRATIVE: CASE EVENT DATE: 20230104
